FAERS Safety Report 9887312 (Version 1)
Quarter: 2014Q1

REPORT INFORMATION
  Report Type: Spontaneous
  Country: US (occurrence: US)
  Receive Date: 20140211
  Receipt Date: 20140211
  Transmission Date: 20141002
  Serious: No
  Sender: FDA-Public Use
  Company Number: US-009507513-1402USA003214

PATIENT
  Age: 79 Year
  Sex: Female

DRUGS (2)
  1. DULERA [Suspect]
     Indication: ASTHMA
     Dosage: UNK
     Route: 055
     Dates: start: 20140129, end: 2014
  2. PRINIVIL [Concomitant]
     Route: 048

REACTIONS (1)
  - Chest pain [Recovering/Resolving]
